FAERS Safety Report 15830047 (Version 2)
Quarter: 2019Q1

REPORT INFORMATION
  Report Type: Spontaneous
  Country: JP (occurrence: JP)
  Receive Date: 20190115
  Receipt Date: 20190204
  Transmission Date: 20190417
  Serious: No
  Sender: FDA-Public Use
  Company Number: JP-ALLERGAN-1902040US

PATIENT
  Age: 16 Year
  Sex: Female

DRUGS (2)
  1. BOTOX [Suspect]
     Active Substance: ONABOTULINUMTOXINA
     Indication: MUSCLE SPASMS
     Dosage: 300 UNITS, SINGLE
     Route: 030
     Dates: start: 20181113, end: 20181113
  2. BOTOX [Suspect]
     Active Substance: ONABOTULINUMTOXINA
     Dosage: 300 UNITS, SINGLE
     Route: 030
     Dates: start: 20180417, end: 20180417

REACTIONS (1)
  - No adverse event [Unknown]
